FAERS Safety Report 10180860 (Version 1)
Quarter: 2014Q2

REPORT INFORMATION
  Report Type: Spontaneous
  Country: US (occurrence: US)
  Receive Date: 20140519
  Receipt Date: 20140519
  Transmission Date: 20141212
  Serious: No
  Sender: FDA-Public Use
  Company Number: US-AMGEN INC.-USASP2014012709

PATIENT
  Age: 70 Year
  Sex: Male

DRUGS (5)
  1. PROLIA [Suspect]
     Indication: BONE LOSS
     Dosage: UNK UNK, Q6MO
     Route: 065
     Dates: start: 20131117
  2. LISINOPRIL [Concomitant]
     Dosage: 25 MG, QD
     Route: 065
  3. ATENOLOL [Concomitant]
     Dosage: UNK
     Route: 065
  4. LUPRON [Concomitant]
     Indication: BLOOD TESTOSTERONE DECREASED
     Dosage: UNK
     Route: 065
  5. LUPRON [Concomitant]
     Indication: PROSTATIC SPECIFIC ANTIGEN DECREASED

REACTIONS (5)
  - Dysphagia [Unknown]
  - Vomiting [Unknown]
  - Acne [Unknown]
  - Throat irritation [Unknown]
  - Cough [Unknown]
